FAERS Safety Report 5479343-9 (Version None)
Quarter: 2007Q4

REPORT INFORMATION
  Report Type: 
  Country: None (occurrence: None)
  Receive Date: 20071008
  Receipt Date: 20071004
  Transmission Date: 20080405
  Serious: Yes (Hospitalization)
  Sender: FDA-Public Use
  Company Number: US-ASTRAZENECA-2007UW19637

PATIENT
  Age: 37 Year
  Sex: Male
  Weight: 82.3 kg

DRUGS (8)
  1. MERREM [Suspect]
     Indication: PNEUMONIA
     Route: 042
     Dates: start: 20070803, end: 20070809
  2. PROTONIX [Concomitant]
  3. COUMADIN [Concomitant]
  4. LASIX [Concomitant]
  5. ZONEGRAN [Concomitant]
  6. VALPROIC ACID [Concomitant]
  7. REGLAN [Concomitant]
  8. VANCOMYCIN [Concomitant]

REACTIONS (1)
  - ACTINIC KERATOSIS [None]
